FAERS Safety Report 5567475-6 (Version None)
Quarter: 2007Q4

REPORT INFORMATION
  Report Type: 
  Country: None (occurrence: None)
  Receive Date: 20071219
  Receipt Date: 20071211
  Transmission Date: 20080405
  Serious: Yes (Hospitalization)
  Sender: FDA-Public Use
  Company Number: JP-MERCK-0711USA04322

PATIENT
  Age: 62 Year
  Sex: Female

DRUGS (2)
  1. ZETIA [Suspect]
     Indication: HYPERCHOLESTEROLAEMIA
     Route: 048
     Dates: start: 20071105, end: 20071112
  2. PRAVASTATIN SODIUM [Concomitant]
     Route: 065
     Dates: end: 20071112

REACTIONS (1)
  - ERYTHEMA MULTIFORME [None]
